FAERS Safety Report 6043030-9 (Version None)
Quarter: 2009Q1

REPORT INFORMATION
  Report Type: 
  Country: None (occurrence: None)
  Receive Date: 20090119
  Receipt Date: 20090106
  Transmission Date: 20090719
  Serious: No
  Sender: FDA-Public Use
  Company Number: FR-ELI_LILLY_AND_COMPANY-FR200811005555

PATIENT
  Age: 74 Year
  Sex: Female

DRUGS (8)
  1. FORTEO [Suspect]
     Indication: OSTEOPOROSIS
     Dosage: 20 UG, DAILY (1/D)
     Route: 058
     Dates: start: 20080301
  2. DEDROGYL [Concomitant]
  3. DOLIPRANE [Concomitant]
  4. TANGANIL /00129601/ [Concomitant]
  5. SERC /00141802/ [Concomitant]
  6. FENOFIBRATE [Concomitant]
  7. DILTIAZEM HCL [Concomitant]
  8. ZOPICLONE [Concomitant]

REACTIONS (4)
  - MALAISE [None]
  - PARALYSIS [None]
  - SPEECH DISORDER [None]
  - WEIGHT INCREASED [None]
